FAERS Safety Report 4265919-3 (Version None)
Quarter: 2004Q1

REPORT INFORMATION
  Report Type: 
  Country: None (occurrence: None)
  Receive Date: 20040106
  Receipt Date: 20031229
  Transmission Date: 20041129
  Serious: Yes (Death, Other)
  Sender: FDA-Public Use
  Company Number: USA-2003-0005906

PATIENT
  Age: 35 Year
  Sex: Female

DRUGS (4)
  1. OXYCONTIN [Suspect]
     Indication: PAIN
     Dosage: 80 MG, Q12H, ORAL
     Route: 048
  2. OXYCODONE HCL [Suspect]
     Indication: PAIN
  3. SOMA [Suspect]
  4. GLUCOPHAGE [Concomitant]

REACTIONS (2)
  - DRUG ABUSER [None]
  - OVERDOSE [None]
